FAERS Safety Report 25058505 (Version 1)
Quarter: 2025Q1

REPORT INFORMATION
  Report Type: Spontaneous
  Country: CN (occurrence: CN)
  Receive Date: 20250310
  Receipt Date: 20250310
  Transmission Date: 20250409
  Serious: Yes (Hospitalization)
  Sender: PFIZER
  Company Number: CN-PFIZER INC-PV202500027524

PATIENT
  Age: 64 Year
  Sex: Female

DRUGS (1)
  1. ZYVOX [Suspect]
     Active Substance: LINEZOLID
     Indication: Intervertebral disc protrusion
     Dosage: 600 MG, 2X/DAY
     Route: 048
     Dates: start: 20241216, end: 20241222

REACTIONS (2)
  - Granulocyte count decreased [Recovering/Resolving]
  - Drug level increased [Unknown]

NARRATIVE: CASE EVENT DATE: 20241221
